FAERS Safety Report 4996313-5 (Version None)
Quarter: 2006Q2

REPORT INFORMATION
  Report Type: 
  Country: None (occurrence: None)
  Receive Date: 20060505
  Receipt Date: 20060428
  Transmission Date: 20061013
  Serious: Yes (Hospitalization, Other)
  Sender: FDA-Public Use
  Company Number: HQWYE039628APR06

PATIENT
  Age: 70 Year
  Sex: Female

DRUGS (8)
  1. AVLOCARDYL (PROPRANOLOL HYDROCHLORIDE, TABLET) [Suspect]
     Indication: ESSENTIAL HYPERTENSION
     Dosage: 160  MG 1X PER 1 DAY ORAL
     Route: 048
     Dates: end: 20060302
  2. AMLODIPINE BESYLATE [Suspect]
     Indication: ESSENTIAL HYPERTENSION
     Dosage: 5 MG 1X PER 1 DAY ORAL
     Route: 048
     Dates: end: 20060302
  3. HYZAAR [Suspect]
     Indication: ESSENTIAL HYPERTENSION
     Dosage: 1 DOSAGE FORM 1X PER 1 DAY ORAL
     Route: 048
     Dates: end: 20060302
  4. PHYSIOTENS  GIULINI (MOXONIDINE) [Suspect]
     Indication: ESSENTIAL HYPERTENSION
     Dosage: 1 DOSAGE FORM 1X PER 1 DAY ORAL
     Route: 048
     Dates: end: 20060302
  5. PRAZEPAM [Concomitant]
  6. EFFEXOR [Concomitant]
  7. ZOLPIDEM TARTRATE [Concomitant]
  8. ZYPREXA [Concomitant]

REACTIONS (3)
  - DRUG INTERACTION [None]
  - HYPOTENSION [None]
  - PSYCHOMOTOR RETARDATION [None]
